FAERS Safety Report 4534948-4 (Version None)
Quarter: 2004Q4

REPORT INFORMATION
  Report Type: 
  Country: None (occurrence: None)
  Receive Date: 20041222
  Receipt Date: 20040907
  Transmission Date: 20050328
  Serious: No
  Sender: FDA-Public Use
  Company Number: US-BRISTOL-MYERS SQUIBB COMPANY-12695771

PATIENT
  Age: 59 Year
  Sex: Male
  Weight: 63 kg

DRUGS (9)
  1. PRAVACHOL [Suspect]
     Indication: BLOOD CHOLESTEROL INCREASED
     Route: 048
  2. SYNTHROID [Concomitant]
  3. VITAMIN A [Concomitant]
  4. VITAMIN E [Concomitant]
  5. ZINC [Concomitant]
  6. CALCIUM [Concomitant]
  7. GINKGO [Concomitant]
  8. SALMON OIL [Concomitant]
  9. COD LIVER OIL [Concomitant]

REACTIONS (1)
  - RASH [None]
